FAERS Safety Report 6633650-2 (Version None)
Quarter: 2010Q1

REPORT INFORMATION
  Report Type: 
  Country: None (occurrence: None)
  Receive Date: 20100312
  Receipt Date: 20100305
  Transmission Date: 20100710
  Serious: Yes (Hospitalization, Other)
  Sender: FDA-Public Use
  Company Number: US-AMGEN-QUU397944

PATIENT
  Sex: Male

DRUGS (1)
  1. ENBREL [Suspect]
     Indication: RHEUMATOID ARTHRITIS
     Route: 058
     Dates: start: 20060301, end: 20070101

REACTIONS (4)
  - ABDOMINAL INFECTION [None]
  - LAPAROSCOPIC SURGERY [None]
  - RENAL FAILURE [None]
  - UNEVALUABLE EVENT [None]
